FAERS Safety Report 5472572-X (Version None)
Quarter: 2007Q4

REPORT INFORMATION
  Report Type: 
  Country: None (occurrence: None)
  Receive Date: 20071001
  Receipt Date: 20060727
  Transmission Date: 20080405
  Serious: No
  Sender: FDA-Public Use
  Company Number: US-ASTRAZENECA-2006UW15226

PATIENT
  Age: 48 Year
  Sex: Female
  Weight: 40.8 kg

DRUGS (5)
  1. ARIMIDEX [Suspect]
     Indication: BREAST CANCER
     Route: 048
     Dates: start: 20060701
  2. ARIMIDEX [Suspect]
     Indication: CHEMOTHERAPY
     Route: 048
     Dates: start: 20060701
  3. ARIMIDEX [Suspect]
     Indication: RADIOTHERAPY
     Route: 048
     Dates: start: 20060701
  4. ALLERGY MEDICATION [Concomitant]
  5. EFFEXOR [Concomitant]
     Indication: HOT FLUSH

REACTIONS (4)
  - ACNE [None]
  - ALOPECIA [None]
  - FATIGUE [None]
  - HOT FLUSH [None]
